FAERS Safety Report 4462370-8 (Version None)
Quarter: 2004Q3

REPORT INFORMATION
  Report Type: 
  Country: None (occurrence: None)
  Receive Date: 20040923
  Receipt Date: 20040914
  Transmission Date: 20050211
  Serious: Yes (Life-Threatening, Hospitalization)
  Sender: FDA-Public Use
  Company Number: HQWYE018215SEP04

PATIENT
  Age: 43 Year
  Sex: Female

DRUGS (7)
  1. RAPAMUNE [Suspect]
     Indication: PROPHYLAXIS AGAINST TRANSPLANT REJECTION
     Dosage: 6 MG 1X PER 1 DAY; 3 MG 1X PER 1 DAY
     Route: 048
     Dates: start: 20031021, end: 20040817
  2. RAPAMUNE [Suspect]
     Indication: PROPHYLAXIS AGAINST TRANSPLANT REJECTION
     Dosage: 6 MG 1X PER 1 DAY; 3 MG 1X PER 1 DAY
     Route: 048
     Dates: start: 20040818, end: 20040819
  3. PROGRAF [Suspect]
     Indication: PROPHYLAXIS AGAINST TRANSPLANT REJECTION
     Dosage: ORAL, DOSE DECREASED BY HALF ORAL; 2 MG 1X PER 1 DAY ORAL
     Route: 048
     Dates: start: 20031021, end: 20040811
  4. PROGRAF [Suspect]
     Indication: PROPHYLAXIS AGAINST TRANSPLANT REJECTION
     Dosage: ORAL, DOSE DECREASED BY HALF ORAL; 2 MG 1X PER 1 DAY ORAL
     Route: 048
     Dates: start: 20040812, end: 20040816
  5. PROGRAF [Suspect]
     Indication: PROPHYLAXIS AGAINST TRANSPLANT REJECTION
     Dosage: ORAL, DOSE DECREASED BY HALF ORAL; 2 MG 1X PER 1 DAY ORAL
     Route: 048
     Dates: start: 20040816, end: 20040822
  6. VALCYTE [Concomitant]
  7. PREDNISONE [Concomitant]

REACTIONS (5)
  - ACUTE RESPIRATORY DISTRESS SYNDROME [None]
  - BIOPSY KIDNEY ABNORMAL [None]
  - BLOOD CREATININE INCREASED [None]
  - DRUG TOXICITY [None]
  - PNEUMOCYSTIS CARINII PNEUMONIA [None]
